FAERS Safety Report 5869624-9 (Version None)
Quarter: 2008Q3

REPORT INFORMATION
  Report Type: 
  Country: None (occurrence: None)
  Receive Date: 20080904
  Receipt Date: 20080604
  Transmission Date: 20090109
  Serious: No
  Sender: FDA-Public Use
  Company Number: US-KINGPHARMUSA00001-K200800638

PATIENT

DRUGS (6)
  1. CYTOMEL [Suspect]
     Indication: HYPOTHYROIDISM
     Dosage: 25 MCG, QD
     Route: 048
     Dates: start: 20080503
  2. CYTOMEL [Suspect]
     Dosage: 50 MCG, QD
     Route: 048
     Dates: start: 20080501, end: 20080603
  3. VISTARIL                           /00058403/ [Concomitant]
  4. HORMONES AND RELATED AGENTS [Concomitant]
  5. PROVIGIL [Concomitant]
     Dosage: UNK, PRN
  6. UNSPECIFIED MEDICATION FOR SLEEP [Concomitant]
     Indication: SLEEP DISORDER

REACTIONS (4)
  - ASTHENIA [None]
  - DRUG INEFFECTIVE [None]
  - DYSPNOEA [None]
  - PALPITATIONS [None]
